FAERS Safety Report 5705817-9 (Version None)
Quarter: 2008Q2

REPORT INFORMATION
  Report Type: 
  Country: None (occurrence: None)
  Receive Date: 20080411
  Receipt Date: 20080405
  Transmission Date: 20081010
  Serious: Yes (Hospitalization)
  Sender: FDA-Public Use
  Company Number: 2008SP004360

PATIENT
  Age: 42 Year
  Sex: Female

DRUGS (2)
  1. PEG-INTRON (PEGINTERFERON ALFA-2B) [Suspect]
     Indication: HEPATITIS C
     Dosage: SC
     Route: 058
  2. RIBAVIRIN [Suspect]
     Indication: HEPATITIS C
     Dosage: PO
     Route: 048

REACTIONS (22)
  - ALOPECIA [None]
  - ANAEMIA [None]
  - BLOOD GLUCOSE INCREASED [None]
  - BONE PAIN [None]
  - BURNING SENSATION [None]
  - CHILLS [None]
  - DEHYDRATION [None]
  - DIZZINESS [None]
  - DRY SKIN [None]
  - FALL [None]
  - HAEMORRHAGE [None]
  - ILL-DEFINED DISORDER [None]
  - LOSS OF CONSCIOUSNESS [None]
  - MEMORY IMPAIRMENT [None]
  - NAUSEA [None]
  - SCAR [None]
  - SKIN EXFOLIATION [None]
  - UTERINE CYST [None]
  - UTERINE DISORDER [None]
  - UTERINE LEIOMYOMA [None]
  - VERTIGO [None]
  - VISUAL DISTURBANCE [None]
